FAERS Safety Report 6910504-5 (Version None)
Quarter: 2010Q3

REPORT INFORMATION
  Report Type: 
  Country: None (occurrence: None)
  Receive Date: 20100806
  Receipt Date: 20100726
  Transmission Date: 20110219
  Serious: Yes (Other)
  Sender: FDA-Public Use
  Company Number: PHEH2009US01507

PATIENT
  Sex: Male

DRUGS (49)
  1. ELIDEL [Suspect]
     Indication: ECZEMA
     Dosage: UNK
     Route: 061
     Dates: start: 20051101
  2. CIMETIDINE [Concomitant]
     Dosage: 300 MG, UNK
     Route: 048
  3. CODEINE CO [Concomitant]
     Dosage: 30-300MG, UNK
     Route: 048
  4. VYVANSE [Concomitant]
     Dosage: 30 MG, UNK
     Route: 048
  5. AMOXICILLIN AND CLAVULANATE POTASSIUM [Concomitant]
     Dosage: 875 MG, UNK
     Route: 048
  6. ALDARA [Concomitant]
     Dosage: 5 %, UNK
     Route: 061
  7. ZOFRAN [Concomitant]
     Dosage: 4 MG, PRN
     Route: 048
  8. FLUOXETINE [Concomitant]
     Dosage: 20 MG, UNK
     Route: 048
  9. FLUOXETINE [Concomitant]
     Dosage: 40 MG, UNK
     Route: 048
  10. HYDROCORTISONE VALERATE [Concomitant]
     Dosage: 0.2 %, UNK
     Route: 061
  11. KETOCONOZOLE [Concomitant]
     Dosage: 2 %, UNK
     Route: 061
  12. RISPERIDONE [Concomitant]
     Dosage: 0.5 MG, UNK
     Route: 048
  13. AZITHROMYCIN [Concomitant]
     Dosage: 250 MG, QD
     Route: 051
  14. L.M.X.4 [Concomitant]
     Dosage: 4 %, UNK
     Route: 061
  15. TYLENOL W/ CODEINE NO. 3 [Concomitant]
     Dosage: 2 TABS, PRN
     Route: 048
  16. CHLORHEXIDINE ^DAK^ [Concomitant]
     Dosage: 0.12 %, UNK
     Route: 049
  17. NEUPOGEN [Concomitant]
     Dosage: 300 MCG, UNK
  18. PROMETHAZINE [Concomitant]
     Dosage: 25 MG, PRN
     Route: 048
  19. ALLOPURINOL [Concomitant]
     Dosage: 300 MG, UNK
     Route: 048
  20. PREDNISONE [Concomitant]
     Dosage: 10 MG, UNK
     Route: 048
  21. PREDNISONE [Concomitant]
     Dosage: 85MG, BID
     Route: 048
  22. RANITIDINE [Concomitant]
     Dosage: 150 MG, UNK
     Route: 048
  23. BROMFENEX [Concomitant]
     Dosage: UNK
     Route: 048
  24. MOMETASONE FUROATE [Concomitant]
     Dosage: 0.1 %, UNK
     Route: 061
  25. AMOXIL ^AYERST LAB^ [Concomitant]
     Dosage: 400 MG, UNK
     Route: 048
  26. TRIAMCINOLONE [Concomitant]
  27. INFLUENZA VACCINE [Concomitant]
  28. PROZAC [Concomitant]
  29. OMNICEF [Concomitant]
  30. ADDERALL XR 10 [Concomitant]
  31. CONCERTA [Concomitant]
  32. CYCLOPHOSPHAMIDE [Concomitant]
  33. VINCRISTINE [Concomitant]
  34. ADRIAMYCIN PFS [Concomitant]
  35. METHOTREXATE [Concomitant]
  36. SENNA [Concomitant]
  37. CHLORHEXIDINE GLUCONATE [Concomitant]
  38. FLUCONAZOLE [Concomitant]
  39. GLUTAMINE [Concomitant]
  40. CETIRIZINE HCL [Concomitant]
  41. LEUKOVORIN DABUR [Concomitant]
  42. CYTOXAN [Concomitant]
  43. CEFEPIME [Concomitant]
  44. FLAGYL [Concomitant]
  45. VANCOMYCIN [Concomitant]
  46. EMLA [Concomitant]
     Dosage: 2.5%-2.5%,
  47. PHENERGAN [Concomitant]
     Dosage: 12.5MG, EVERY 4 HOURS AS NEEDED
     Route: 048
  48. PERIDEX [Concomitant]
     Dosage: 15ML, 2 TIMES DAILY SWISH AND SPIT
     Route: 048
  49. SENOKOT [Concomitant]
     Dosage: ONE TABLET QHS

REACTIONS (36)
  - ANGER [None]
  - ANXIETY [None]
  - ATTENTION DEFICIT/HYPERACTIVITY DISORDER [None]
  - AUTISM SPECTRUM DISORDER [None]
  - B-CELL LYMPHOMA [None]
  - BIOPSY BONE MARROW [None]
  - BIOPSY LYMPH GLAND [None]
  - BIPOLAR DISORDER [None]
  - CENTRAL VENOUS CATHETER REMOVAL [None]
  - CENTRAL VENOUS CATHETERISATION [None]
  - CHRONIC SINUSITIS [None]
  - CONJUNCTIVITIS [None]
  - COUGH [None]
  - DEPRESSION [None]
  - EAR INFECTION [None]
  - ECZEMA [None]
  - ECZEMA EYELIDS [None]
  - HALLUCINATION, AUDITORY [None]
  - IMPULSE-CONTROL DISORDER [None]
  - LUNG NEOPLASM [None]
  - LYMPHADENOPATHY [None]
  - LYMPHOMA [None]
  - MASS EXCISION [None]
  - NAUSEA [None]
  - OBSESSIVE-COMPULSIVE DISORDER [None]
  - PHARYNGITIS [None]
  - PSYCHOTIC DISORDER [None]
  - PYREXIA [None]
  - REFLUX OESOPHAGITIS [None]
  - RHINITIS ALLERGIC [None]
  - SINUSITIS [None]
  - SUICIDAL IDEATION [None]
  - TOE WALKING [None]
  - UPPER RESPIRATORY TRACT CONGESTION [None]
  - UPPER RESPIRATORY TRACT INFECTION [None]
  - VIRAL PHARYNGITIS [None]
